FAERS Safety Report 14257101 (Version 1)
Quarter: 2017Q4

REPORT INFORMATION
  Report Type: Spontaneous
  Country: TW (occurrence: TW)
  Receive Date: 20171206
  Receipt Date: 20171206
  Transmission Date: 20180321
  Serious: Yes (Other)
  Sender: FDA-Public Use
  Company Number: TW-AMGEN-TWNSP2017180129

PATIENT
  Age: 80 Year
  Sex: Female

DRUGS (1)
  1. PROLIA [Suspect]
     Active Substance: DENOSUMAB
     Indication: OSTEOPOROSIS
     Dosage: UNK UNK, Q6MO
     Route: 065

REACTIONS (6)
  - Wound complication [Unknown]
  - Scar [Unknown]
  - Tooth extraction [Unknown]
  - Surgical skin tear [Unknown]
  - Pruritus [Unknown]
  - Toothache [Unknown]

NARRATIVE: CASE EVENT DATE: 201612
